FAERS Safety Report 8150912-0 (Version None)
Quarter: 2012Q1

REPORT INFORMATION
  Report Type: 
  Country: None (occurrence: None)
  Receive Date: 20120220
  Receipt Date: 20120209
  Transmission Date: 20120608
  Serious: Yes (Other)
  Sender: FDA-Public Use
  Company Number: PHEH2012US003579

PATIENT

DRUGS (4)
  1. ALENDRONATE SODIUM [Suspect]
     Dates: start: 20080201, end: 20080901
  2. RECLAST [Suspect]
     Dates: start: 20091101
  3. ALENDRONATE SODIUM [Suspect]
     Dates: start: 20080901, end: 20081001
  4. FOSAMAX [Suspect]
     Dates: start: 19950101, end: 20080101

REACTIONS (6)
  - BONE MARROW FAILURE [None]
  - TOXICITY TO VARIOUS AGENTS [None]
  - ANHEDONIA [None]
  - FEMUR FRACTURE [None]
  - ANXIETY [None]
  - EMOTIONAL DISTRESS [None]
